FAERS Safety Report 8358700 (Version 3)
Quarter: 2014Q1

REPORT INFORMATION
  Report Type: Report from Study
  Country: CA (occurrence: CA)
  Receive Date: 20120127
  Receipt Date: 20140321
  Transmission Date: 20141002
  Serious: Yes (Death, Hospitalization, Disabling, Other)
  Sender: FDA-Public Use
  Company Number: PHHY2012CA006216

PATIENT
  Age: 85 Year
  Sex: Female

DRUGS (18)
  1. ACLASTA [Suspect]
     Indication: OSTEOPOROSIS
     Dosage: 5 MG, UNK
     Route: 042
     Dates: start: 20100112
  2. ACLASTA [Suspect]
     Dosage: 5 MG, UNK
     Route: 042
     Dates: start: 20110216
  3. ACLASTA [Suspect]
     Dosage: 5 MG, UNK
     Route: 042
     Dates: start: 20130313
  4. ACETAMINOPHEN [Concomitant]
  5. VIT C [Concomitant]
     Dosage: 500 MG, DAILY
     Route: 048
  6. CALCIUM CARBONATE [Concomitant]
     Dosage: 500 UKN, UNK
  7. CARBIDOPA LEVODOPA [Concomitant]
     Dosage: 1 DF, QD
     Route: 048
  8. VIT D [Concomitant]
     Dosage: 2000 IU, DAILY
  9. VIT B12 [Concomitant]
     Dosage: 250 UG, DAILY
  10. DABIGATRAN [Concomitant]
     Dosage: 110 MG, DAILY
     Route: 048
  11. DOCUSATE W/SENNA [Concomitant]
  12. LACTULOSE [Concomitant]
     Dosage: UNK UKN, PRN
  13. LITHIUM [Concomitant]
  14. MIRTAZAPINE [Concomitant]
     Dosage: 15 MG, DAILY AT BEDTIME
  15. PEG 3350 AND ELECTROLYTES [Concomitant]
     Dosage: 17 G, DAILY
     Route: 048
  16. TIOTROPIUM [Concomitant]
     Dosage: 18 UG, DAILY
  17. TRAZADOL [Concomitant]
     Dosage: 50 MG, DAILY
  18. ZOPICLONE [Concomitant]
     Dosage: 7.5 MG, UNK

REACTIONS (13)
  - Urinary tract infection [Fatal]
  - Sepsis [Fatal]
  - Circulatory collapse [Fatal]
  - Loss of consciousness [Fatal]
  - Femoral neck fracture [Recovering/Resolving]
  - Delirium [Recovering/Resolving]
  - Hip fracture [Unknown]
  - Mobility decreased [Unknown]
  - Fall [Unknown]
  - Sedation [Unknown]
  - Disorientation [Unknown]
  - Confusional state [Unknown]
  - Antipsychotic drug level below therapeutic [Unknown]
